FAERS Safety Report 5532177-9 (Version None)
Quarter: 2007Q4

REPORT INFORMATION
  Report Type: 
  Country: None (occurrence: None)
  Receive Date: 20071203
  Receipt Date: 20071128
  Transmission Date: 20080405
  Serious: Yes (Life-Threatening)
  Sender: FDA-Public Use
  Company Number: GR-AVENTIS-200720776GDDC

PATIENT
  Age: 41 Year
  Sex: Female

DRUGS (3)
  1. ARAVA [Suspect]
     Dosage: DOSE: 1 TABLET
     Route: 048
     Dates: start: 20070919, end: 20071101
  2. LEVOTHYROXINE SODIUM [Concomitant]
     Dosage: DOSE: UNK
     Route: 048
  3. SERTRALINE [Concomitant]
     Dosage: DOSE: UNK
     Route: 048

REACTIONS (5)
  - DRUG INTOLERANCE [None]
  - GASTRIC DISORDER [None]
  - HEPATITIS CHOLESTATIC [None]
  - OCULAR ICTERUS [None]
  - PRURITUS [None]
